FAERS Safety Report 6108498-8 (Version None)
Quarter: 2009Q1

REPORT INFORMATION
  Report Type: 
  Country: None (occurrence: None)
  Receive Date: 20090309
  Receipt Date: 20090306
  Transmission Date: 20090719
  Serious: Yes (Other)
  Sender: FDA-Public Use
  Company Number: JP-B.I. PHARMACEUTICALS,INC./RIDGEFIELD-2009-BP-02680NB

PATIENT
  Age: 70 Year
  Sex: Male

DRUGS (7)
  1. BI-SIFROL TABLETS [Suspect]
     Indication: PARKINSON'S DISEASE
     Dosage: 1.5MG
     Route: 048
  2. EC-DOPARL [Concomitant]
     Indication: PARKINSON'S DISEASE
     Dosage: 500MG
     Route: 048
  3. CABASER [Concomitant]
     Indication: PARKINSON'S DISEASE
     Dosage: 2MG
     Route: 048
  4. SELEGILINE HCL [Concomitant]
     Indication: PARKINSON'S DISEASE
     Dosage: 2.5MG
     Route: 048
  5. CARDENALIN [Concomitant]
     Indication: HYPERTENSION
     Route: 048
  6. ASPIRIN [Concomitant]
     Indication: ANGINA PECTORIS
     Route: 048
  7. PANALDINE [Concomitant]
     Indication: ANGINA PECTORIS
     Route: 048

REACTIONS (1)
  - RAPID EYE MOVEMENTS SLEEP ABNORMAL [None]
